FAERS Safety Report 5571576-6 (Version None)
Quarter: 2007Q4

REPORT INFORMATION
  Report Type: 
  Country: None (occurrence: None)
  Receive Date: 20071221
  Receipt Date: 20071214
  Transmission Date: 20080405
  Serious: Yes (Hospitalization)
  Sender: FDA-Public Use
  Company Number: US-ELI_LILLY_AND_COMPANY-US200712003057

PATIENT
  Sex: Male

DRUGS (13)
  1. CYMBALTA [Suspect]
     Indication: DIABETIC NEUROPATHY
     Dosage: 30 MG, 2/D
     Dates: start: 20071121
  2. TOPROL-XL [Concomitant]
  3. AGGRENOX [Concomitant]
  4. DEMADEX [Concomitant]
  5. INSPRA [Concomitant]
  6. ZOCOR [Concomitant]
  7. WELLBUTRIN [Concomitant]
  8. LUNESTA [Concomitant]
  9. ALLEGRA [Concomitant]
  10. ARICEPT [Concomitant]
  11. INSULIN [Concomitant]
  12. AVAPRO [Concomitant]
  13. MOBIC [Concomitant]

REACTIONS (3)
  - DECREASED APPETITE [None]
  - GASTROENTERITIS VIRAL [None]
  - HYPERHIDROSIS [None]
